FAERS Safety Report 8113274-0 (Version None)
Quarter: 2012Q1

REPORT INFORMATION
  Report Type: 
  Country: None (occurrence: None)
  Receive Date: 20120203
  Receipt Date: 20120202
  Transmission Date: 20120608
  Serious: Yes (Other)
  Sender: FDA-Public Use
  Company Number: US-PFIZER INC-2012007320

PATIENT
  Sex: Female

DRUGS (3)
  1. GABAPENTIN [Suspect]
     Dosage: UNK
  2. LYRICA [Suspect]
     Dosage: 600 MG
  3. LYRICA [Suspect]
     Dosage: 300 MG, A DAY

REACTIONS (5)
  - FALL [None]
  - COMPLEX REGIONAL PAIN SYNDROME [None]
  - SPINAL CORD INJURY [None]
  - PAIN [None]
  - DRUG HYPERSENSITIVITY [None]
